FAERS Safety Report 9388977 (Version 1)
Quarter: 2013Q3

REPORT INFORMATION
  Report Type: Spontaneous
  Country: CH (occurrence: CH)
  Receive Date: 20130708
  Receipt Date: 20130708
  Transmission Date: 20140515
  Serious: Yes (Other)
  Sender: FDA-Public Use
  Company Number: PHHY2013CH049604

PATIENT
  Age: 85 Year
  Sex: Female

DRUGS (5)
  1. AFINITOR [Suspect]
     Indication: BREAST CANCER
     Dates: start: 20120814, end: 201303
  2. AROMASINE [Suspect]
     Dates: start: 20120814, end: 201303
  3. HERCEPTIN [Suspect]
     Indication: BREAST CANCER
     Dosage: UNK
     Dates: start: 201109, end: 201202
  4. XELODA [Suspect]
     Indication: BREAST CANCER
     Dates: start: 201109, end: 201202
  5. FASLODEX [Concomitant]
     Dates: start: 201203, end: 201207

REACTIONS (5)
  - Congestive cardiomyopathy [Unknown]
  - Ejection fraction decreased [Unknown]
  - Bronchitis [Unknown]
  - Dyspnoea [Unknown]
  - Oedema peripheral [Unknown]
